FAERS Safety Report 14905776 (Version 1)
Quarter: 2018Q2

REPORT INFORMATION
  Report Type: Spontaneous
  Country: US (occurrence: US)
  Receive Date: 20180517
  Receipt Date: 20180517
  Transmission Date: 20180711
  Serious: No
  Sender: FDA-Public Use
  Company Number: US-SA-2018SA041482

PATIENT
  Age: 60 Year
  Sex: Female
  Weight: 110 kg

DRUGS (7)
  1. LANTUS SOLOSTAR [Suspect]
     Active Substance: INSULIN GLARGINE
     Indication: LATENT AUTOIMMUNE DIABETES IN ADULTS
     Dosage: DOSE:10 UNIT(S)
     Route: 051
     Dates: start: 20180208
  2. METFORMIN [Concomitant]
     Active Substance: METFORMIN HYDROCHLORIDE
     Route: 065
  3. LANTUS SOLOSTAR [Suspect]
     Active Substance: INSULIN GLARGINE
     Indication: DIABETES MELLITUS
     Dosage: DOSE:10 UNIT(S)
     Route: 051
     Dates: start: 20180208
  4. SOLOSTAR [Suspect]
     Active Substance: DEVICE
     Indication: DIABETES MELLITUS
     Dates: start: 20180208
  5. LANTUS SOLOSTAR [Suspect]
     Active Substance: INSULIN GLARGINE
     Indication: LATENT AUTOIMMUNE DIABETES IN ADULTS
     Dosage: DOSE:10 UNIT(S)
     Route: 051
     Dates: start: 20180208
  6. LANTUS SOLOSTAR [Suspect]
     Active Substance: INSULIN GLARGINE
     Indication: DIABETES MELLITUS
     Dosage: DOSE:10 UNIT(S)
     Route: 051
     Dates: start: 20180208
  7. SOLOSTAR [Suspect]
     Active Substance: DEVICE
     Indication: LATENT AUTOIMMUNE DIABETES IN ADULTS
     Dates: start: 20180208

REACTIONS (12)
  - Injection site pruritus [Recovering/Resolving]
  - Injection site haemorrhage [Recovering/Resolving]
  - Injection site discomfort [Unknown]
  - Injection site pain [Unknown]
  - Injection site pain [Recovering/Resolving]
  - Limb discomfort [Unknown]
  - Pain [Recovering/Resolving]
  - Injection site rash [Unknown]
  - Blood glucose increased [Unknown]
  - Gait disturbance [Unknown]
  - Neuropathy peripheral [Unknown]
  - Alopecia [Unknown]

NARRATIVE: CASE EVENT DATE: 201802
